FAERS Safety Report 9733378 (Version 1)
Quarter: 2013Q4

REPORT INFORMATION
  Report Type: Spontaneous
  Country: US (occurrence: None)
  Receive Date: 20131204
  Receipt Date: 20131204
  Transmission Date: 20140711
  Serious: Yes (Other)
  Sender: FDA-Public Use
  Company Number: None

PATIENT
  Age: 42 Year
  Sex: Female

DRUGS (6)
  1. LETAIRIS 10MG GILEAD [Suspect]
     Indication: PULMONARY HYPERTENSION
     Route: 048
     Dates: start: 201307
  2. NORTRIPTYLINE [Concomitant]
  3. FUROSEMIDE [Concomitant]
  4. EZETIMIBE [Concomitant]
  5. ATORVASTATIN [Concomitant]
  6. WARFARIN [Concomitant]

REACTIONS (2)
  - Pregnancy [None]
  - Exposure during pregnancy [None]
